FAERS Safety Report 18526412 (Version 1)
Quarter: 2020Q4

REPORT INFORMATION
  Report Type: Spontaneous
  Country: GB (occurrence: GB)
  Receive Date: 20201120
  Receipt Date: 20201120
  Transmission Date: 20210114
  Serious: Yes (Hospitalization)
  Sender: FDA-Public Use
  Company Number: GB-TEVA-2020-GB-1850158

PATIENT
  Age: 63 Year
  Sex: Female
  Weight: 42.7 kg

DRUGS (21)
  1. ACETYLSALICYLIC ACID [Concomitant]
     Active Substance: ASPIRIN
  2. SIMVASTATIN. [Concomitant]
     Active Substance: SIMVASTATIN
  3. TIOTROPIUM [Concomitant]
     Active Substance: TIOTROPIUM
  4. LANTUS [Concomitant]
     Active Substance: INSULIN GLARGINE
  5. NICOTINE. [Concomitant]
     Active Substance: NICOTINE
  6. SALBUTAMOL [Concomitant]
     Active Substance: ALBUTEROL
  7. BISOPROLOL [Concomitant]
     Active Substance: BISOPROLOL
  8. SPIRONOLACTONE. [Concomitant]
     Active Substance: SPIRONOLACTONE
  9. LEVOFLOXACIN. [Suspect]
     Active Substance: LEVOFLOXACIN
     Indication: PNEUMONIA
     Dosage: 1000 MG
     Route: 048
     Dates: start: 20201008, end: 20201013
  10. ALENDRONIC ACID [Concomitant]
     Active Substance: ALENDRONIC ACID
  11. DULOXETINE. [Concomitant]
     Active Substance: DULOXETINE
  12. CETIRIZINE [Concomitant]
     Active Substance: CETIRIZINE HYDROCHLORIDE
  13. IVABRADINE [Concomitant]
     Active Substance: IVABRADINE
  14. FOSTAIR [Concomitant]
     Active Substance: BECLOMETHASONE\FORMOTEROL
  15. LACTULOSE. [Concomitant]
     Active Substance: LACTULOSE
  16. ADCAL-D3 [Concomitant]
     Active Substance: CALCIUM CARBONATE\CHOLECALCIFEROL
  17. NUTRIZYM [Concomitant]
  18. MOVICOL [Concomitant]
     Active Substance: POLYETHYLENE GLYCOL 3350\POTASSIUM CHLORIDE\SODIUM BICARBONATE\SODIUM CHLORIDE
  19. RAMIPRIL. [Concomitant]
     Active Substance: RAMIPRIL
  20. ENOXAPARIN [Concomitant]
     Active Substance: ENOXAPARIN
  21. BUMETANIDE. [Concomitant]
     Active Substance: BUMETANIDE

REACTIONS (3)
  - Pain in extremity [Not Recovered/Not Resolved]
  - Tendon rupture [Not Recovered/Not Resolved]
  - Erythema [Not Recovered/Not Resolved]

NARRATIVE: CASE EVENT DATE: 20201013
